FAERS Safety Report 10664700 (Version 1)
Quarter: 2014Q4

REPORT INFORMATION
  Report Type: Spontaneous
  Country: US (occurrence: None)
  Receive Date: 20141208
  Receipt Date: 20141208
  Transmission Date: 20150529
  Serious: No
  Sender: FDA-Public Use
  Company Number: 2014TUS008223

PATIENT
  Age: 45 Year
  Sex: Female

DRUGS (3)
  1. SYNTHROID [Concomitant]
     Active Substance: LEVOTHYROXINE SODIUM
  2. BRINTELLIX [Suspect]
     Active Substance: VORTIOXETINE HYDROBROMIDE
     Indication: MAJOR DEPRESSION
     Route: 048
     Dates: start: 20140821
  3. LITHIUM [Concomitant]
     Active Substance: LITHIUM CARBONATE

REACTIONS (3)
  - Prescribed overdose [None]
  - Off label use [None]
  - No adverse event [None]

NARRATIVE: CASE EVENT DATE: 20140821
